FAERS Safety Report 11433543 (Version 1)
Quarter: 2015Q3

REPORT INFORMATION
  Report Type: Spontaneous
  Country: JP (occurrence: None)
  Receive Date: 20150827
  Receipt Date: 20150827
  Transmission Date: 20151125
  Serious: Yes (Hospitalization)
  Sender: FDA-Public Use
  Company Number: JP-2015ARB000004

PATIENT
  Age: 0 Day
  Sex: Female

DRUGS (1)
  1. GLIADEL [Suspect]
     Active Substance: CARMUSTINE
     Indication: GLIOBLASTOMA
     Dosage: 7.7 MG, 4 TOTAL , INTRACEREBRAL
     Dates: start: 20150406

REACTIONS (4)
  - Cerebral infarction [None]
  - Brain herniation [None]
  - Activities of daily living impaired [None]
  - Pupils unequal [None]

NARRATIVE: CASE EVENT DATE: 20150407
